FAERS Safety Report 18790344 (Version 3)
Quarter: 2025Q2

REPORT INFORMATION
  Report Type: Spontaneous
  Country: MX (occurrence: MX)
  Receive Date: 20210126
  Receipt Date: 20250422
  Transmission Date: 20250716
  Serious: Yes (Other)
  Sender: BIOMARIN
  Company Number: MX-BIOMARINAP-MX-2021-134602

PATIENT

DRUGS (1)
  1. LARONIDASE [Suspect]
     Active Substance: LARONIDASE
     Indication: Mucopolysaccharidosis I
     Dosage: 7 TO 9 VIALS/QW
     Route: 042
     Dates: start: 20120830

REACTIONS (7)
  - Seizure [Recovered/Resolved]
  - Seizure [Recovering/Resolving]
  - Hypertension [Recovered/Resolved]
  - Nervousness [Unknown]
  - Sleep apnoea syndrome [Recovering/Resolving]
  - Dry eye [Recovered/Resolved]
  - Intraocular pressure increased [Recovered/Resolved]

NARRATIVE: CASE EVENT DATE: 20200101
